FAERS Safety Report 7304886-2 (Version None)
Quarter: 2011Q1

REPORT INFORMATION
  Report Type: 
  Country: None (occurrence: None)
  Receive Date: 20110222
  Receipt Date: 20110210
  Transmission Date: 20110831
  Serious: No
  Sender: FDA-Public Use
  Company Number: MX-ELI_LILLY_AND_COMPANY-MX201012004493

PATIENT
  Age: 89 Year
  Sex: Female

DRUGS (3)
  1. HUMATROPE [Suspect]
     Indication: MUSCLE MASS
     Dosage: UNK, UNKNOWN
     Route: 065
     Dates: start: 20050101
  2. HUMATROPE [Suspect]
     Dosage: UNK, UNKNOWN
     Route: 065
  3. HUMATROPE [Suspect]
     Dosage: UNK, UNKNOWN
     Route: 065
     Dates: start: 20080101, end: 20080101

REACTIONS (1)
  - OFF LABEL USE [None]
